FAERS Safety Report 10390340 (Version 1)
Quarter: 2014Q3

REPORT INFORMATION
  Report Type: Spontaneous
  Country: US (occurrence: US)
  Receive Date: 20140818
  Receipt Date: 20140818
  Transmission Date: 20150326
  Serious: No
  Sender: FDA-Public Use
  Company Number: US-PFIZER INC-2014226458

PATIENT
  Age: 75 Year
  Sex: Female

DRUGS (1)
  1. SUTENT [Suspect]
     Active Substance: SUNITINIB MALATE
     Indication: RENAL CANCER
     Dosage: 12.5 MG, CYCLIC (4 CAPSULES 4 WKS ON 2 WKS OFF)
     Dates: start: 20140719, end: 20140811

REACTIONS (1)
  - Thrombocytopenia [Not Recovered/Not Resolved]
